FAERS Safety Report 18077342 (Version 1)
Quarter: 2020Q3

REPORT INFORMATION
  Report Type: Spontaneous
  Country: IT (occurrence: IT)
  Receive Date: 20200727
  Receipt Date: 20200727
  Transmission Date: 20201103
  Serious: Yes (Other)
  Sender: FDA-Public Use
  Company Number: NVSC2020IT209196

PATIENT
  Age: 51 Year
  Sex: Male

DRUGS (5)
  1. FLUDARABINE PHOSPHATE. [Suspect]
     Active Substance: FLUDARABINE PHOSPHATE
     Dosage: 50 MG/M2 (TOTAL DOSE: 200 MG/M2)
     Route: 065
  2. CYCLOPHOSPHAMIDE. [Suspect]
     Active Substance: CYCLOPHOSPHAMIDE
     Dosage: 50 MG/KG
     Route: 065
  3. FLUDARABINE PHOSPHATE. [Suspect]
     Active Substance: FLUDARABINE PHOSPHATE
     Indication: PROPHYLAXIS AGAINST GRAFT VERSUS HOST DISEASE
     Dosage: 150 MG/M2
     Route: 065
  4. MELPHALAN. [Concomitant]
     Active Substance: MELPHALAN
     Indication: IMMUNOSUPPRESSANT DRUG THERAPY
     Dosage: 50 MG/M2
     Route: 065
  5. CYCLOPHOSPHAMIDE. [Suspect]
     Active Substance: CYCLOPHOSPHAMIDE
     Indication: PROPHYLAXIS AGAINST GRAFT VERSUS HOST DISEASE
     Dosage: 30 MG/KG
     Route: 065

REACTIONS (8)
  - Acute graft versus host disease [Recovered/Resolved]
  - Polyomavirus viraemia [Unknown]
  - Mucosal inflammation [Unknown]
  - Thrombocytopenia [Unknown]
  - Neutropenia [Unknown]
  - Product use in unapproved indication [Unknown]
  - Cytopenia [Unknown]
  - Sepsis [Unknown]
